FAERS Safety Report 9171209 (Version 1)
Quarter: 2013Q1

REPORT INFORMATION
  Report Type: Report from Study
  Country: US (occurrence: US)
  Receive Date: 20130319
  Receipt Date: 20130319
  Transmission Date: 20140127
  Serious: Yes (Other)
  Sender: FDA-Public Use
  Company Number: US-SANOFI-AVENTIS-2013SA027894

PATIENT
  Sex: Male

DRUGS (6)
  1. PREDNISOLONE [Suspect]
     Indication: PROSTATE CANCER METASTATIC
     Dosage: DAILY THROUGHOUT EVERY 21-DAY CYCLE
     Route: 065
  2. DOCETAXEL [Suspect]
     Indication: PROSTATE CANCER METASTATIC
     Dosage: DAY 1
     Route: 065
  3. LENALIDOMIDE [Suspect]
     Indication: PROSTATE CANCER METASTATIC
     Dosage: FOR 14 DAYS OF EVERY 21-DAY CYCLE
     Route: 065
  4. BEVACIZUMAB [Suspect]
     Indication: PROSTATE CANCER METASTATIC
     Dosage: DAY 1 OF EACH CYCLE
     Route: 065
  5. ENOXAPARIN [Concomitant]
  6. PEGFILGRASTIM [Concomitant]
     Dosage: GIVEN ON DAY 2

REACTIONS (1)
  - Anal fistula [Unknown]
